FAERS Safety Report 8223188-3 (Version None)
Quarter: 2012Q1

REPORT INFORMATION
  Report Type: 
  Country: None (occurrence: None)
  Receive Date: 20120321
  Receipt Date: 20110816
  Transmission Date: 20120608
  Serious: Yes (Other)
  Sender: FDA-Public Use
  Company Number: US-ROCHE-1049807

PATIENT
  Sex: Male

DRUGS (4)
  1. ADVAIR DISKUS 100/50 [Concomitant]
     Dosage: 500/50 MCG
  2. OMALIZUMAB [Suspect]
     Indication: PRODUCT USED FOR UNKNOWN INDICATION
     Dates: start: 20110816
  3. SYMBICORT [Concomitant]
     Dosage: 80/4.5
  4. ADVAIR DISKUS 100/50 [Concomitant]
     Dosage: 250/50 MCG

REACTIONS (1)
  - ASTHMA [None]
